FAERS Safety Report 16672889 (Version 1)
Quarter: 2019Q3

REPORT INFORMATION
  Report Type: Spontaneous
  Country: US (occurrence: US)
  Receive Date: 20190805
  Receipt Date: 20190805
  Transmission Date: 20191004
  Serious: Yes (Hospitalization)
  Sender: FDA-Public Use
  Company Number: None

PATIENT
  Age: 54 Year
  Sex: Female

DRUGS (9)
  1. LOPERAMIDE CAPSULE 2 MG [Concomitant]
     Dates: start: 20190507, end: 20190607
  2. LEVOFLOXACIN TAB 500MG [Concomitant]
     Dates: start: 20190401, end: 20190408
  3. POTASSIUM CHLORIDE CAPSULE 10MEQ ER [Concomitant]
     Dates: start: 20190626
  4. DIPHEN/ATROP TAB 2.5MG [Concomitant]
     Dates: start: 20190517, end: 20190523
  5. CAPECITABINE. [Suspect]
     Active Substance: CAPECITABINE
     Indication: BREAST CANCER
     Dosage: ?          OTHER FREQUENCY:1000 AM, 1500 PM;?
     Route: 048
     Dates: start: 20190130
  6. BUDESONIDE TAB ER 9MG [Concomitant]
     Dates: start: 20190802
  7. OXYCODONE 5MG TABLET [Concomitant]
     Dates: start: 20190625, end: 20190630
  8. ONDANSETRON TAB 8MG [Concomitant]
     Active Substance: ONDANSETRON
     Dates: start: 20190517, end: 20190523
  9. CLINDAMYCIN CAP 300MG [Concomitant]
     Active Substance: CLINDAMYCIN
     Dates: start: 20190412, end: 20190419

REACTIONS (2)
  - Diarrhoea [None]
  - Blood potassium decreased [None]

NARRATIVE: CASE EVENT DATE: 20190802
